FAERS Safety Report 8712727 (Version 2)
Quarter: 2012Q4

REPORT INFORMATION
  Report Type: 
  Country: GB (occurrence: GB)
  Receive Date: 20120808
  Receipt Date: 20121220
  Transmission Date: 20130627
  Serious: Yes (Hospitalization, Disabling, Other)
  Sender: FDA-Public Use
  Company Number: GB-RANBAXY-2012R1-58588

PATIENT
  Age: 15 Year
  Sex: Female
  Weight: 89 kg

DRUGS (4)
  1. MINOCYCLINE [Suspect]
     Indication: ACNE
     Dosage: 1 DF, qd
     Route: 048
     Dates: start: 20120531, end: 20120713
  2. CO-CODAMOL [Concomitant]
     Indication: PRODUCT USED FOR UNKNOWN INDICATION
     Dosage: UNK
     Route: 065
  3. IBUPROFEN [Concomitant]
     Indication: PRODUCT USED FOR UNKNOWN INDICATION
     Dosage: UNK
     Route: 065
  4. PARACETAMOL [Concomitant]
     Indication: PRODUCT USED FOR UNKNOWN INDICATION
     Dosage: UNK
     Route: 065

REACTIONS (9)
  - Benign intracranial hypertension [Recovered/Resolved with Sequelae]
  - Vision blurred [Not Recovered/Not Resolved]
  - Dizziness [Unknown]
  - Headache [Unknown]
  - Papilloedema [Unknown]
  - Retinal haemorrhage [Unknown]
  - Visual impairment [Not Recovered/Not Resolved]
  - VIth nerve paralysis [Unknown]
  - Vomiting [Unknown]
